FAERS Safety Report 6184562-2 (Version None)
Quarter: 2009Q2

REPORT INFORMATION
  Report Type: 
  Country: None (occurrence: None)
  Receive Date: 20090508
  Receipt Date: 20090428
  Transmission Date: 20091009
  Serious: Yes (Disabling, Other)
  Sender: FDA-Public Use
  Company Number: US-MERCK-0806USA01840

PATIENT
  Age: 58 Year
  Sex: Female

DRUGS (3)
  1. FOSAMAX [Suspect]
     Indication: OSTEOPOROSIS
     Route: 048
     Dates: start: 20050101, end: 20051106
  2. FOSAMAX [Suspect]
     Route: 048
     Dates: start: 20061001, end: 20071001
  3. FOSAMAX [Suspect]
     Route: 048
     Dates: start: 20030101

REACTIONS (9)
  - ADVERSE EVENT [None]
  - BACK DISORDER [None]
  - BLOOD CHOLESTEROL INCREASED [None]
  - HYPERTENSION [None]
  - MUSCULOSKELETAL DISORDER [None]
  - ORAL INFECTION [None]
  - OSTEONECROSIS [None]
  - ROAD TRAFFIC ACCIDENT [None]
  - TOOTH ABSCESS [None]
